FAERS Safety Report 8977920 (Version 1)
Quarter: 2012Q4

REPORT INFORMATION
  Report Type: 
  Country: FR (occurrence: FR)
  Receive Date: 20121220
  Receipt Date: 20121220
  Transmission Date: 20130627
  Serious: Yes (Hospitalization)
  Sender: FDA-Public Use
  Company Number: FR-ROCHE-1168139

PATIENT
  Age: 57 Year
  Sex: Female

DRUGS (9)
  1. ROCEPHINE [Suspect]
     Indication: PRODUCT USED FOR UNKNOWN INDICATION
     Route: 042
     Dates: start: 20120613, end: 20120618
  2. ROCEPHINE [Suspect]
     Route: 030
     Dates: start: 20120623, end: 20120630
  3. RIFAMPICINE [Suspect]
     Indication: PRODUCT USED FOR UNKNOWN INDICATION
     Route: 048
     Dates: start: 20120618, end: 20120623
  4. CIPROFLOXACINE [Suspect]
     Indication: PRODUCT USED FOR UNKNOWN INDICATION
     Route: 048
     Dates: start: 20120618, end: 20120623
  5. ESIDREX [Concomitant]
  6. TENORMINE [Concomitant]
  7. ATACAND [Concomitant]
  8. PHYSIOTENS [Concomitant]
  9. METFORMIN [Concomitant]

REACTIONS (6)
  - Renal failure [Recovered/Resolved]
  - Proteinuria [Unknown]
  - Back pain [Unknown]
  - Asthenia [Unknown]
  - Nausea [Unknown]
  - Vomiting [Unknown]
